FAERS Safety Report 10191291 (Version 1)
Quarter: 2014Q2

REPORT INFORMATION
  Report Type: Report from Study
  Country: SG (occurrence: SG)
  Receive Date: 20140523
  Receipt Date: 20140523
  Transmission Date: 20141212
  Serious: Yes (Death)
  Sender: FDA-Public Use
  Company Number: SG-SA-2014SA066723

PATIENT
  Sex: 0

DRUGS (2)
  1. FLUDARABINE PHOSPHATE [Suspect]
     Indication: TRANSPLANT
     Route: 065
  2. THERAPEUTIC RADIOPHARMACEUTICALS [Suspect]
     Indication: TRANSPLANT
     Route: 065

REACTIONS (1)
  - Toxicity to various agents [Fatal]
